FAERS Safety Report 22691282 (Version 7)
Quarter: 2023Q4

REPORT INFORMATION
  Report Type: Spontaneous
  Country: FR (occurrence: FR)
  Receive Date: 20230711
  Receipt Date: 20231027
  Transmission Date: 20240110
  Serious: Yes (Life-Threatening, Hospitalization)
  Sender: FDA-Public Use
  Company Number: FR-SEPTODONT-2023017847

PATIENT
  Age: 78 Year
  Sex: Female
  Weight: 49 kg

DRUGS (4)
  1. ARTICAINE HYDROCHLORIDE\EPINEPHRINE BITARTRATE [Suspect]
     Active Substance: ARTICAINE HYDROCHLORIDE\EPINEPHRINE BITARTRATE
     Indication: Dental local anaesthesia
     Dosage: TWO CARTRIDGES: ONE PARA-APICAL AND ONE TRUNCULAR
     Route: 050
     Dates: start: 20230621, end: 20230621
  2. PERINDOPRIL [Concomitant]
     Active Substance: PERINDOPRIL
     Indication: Cardiac disorder
  3. BISOPROLOL [Concomitant]
     Active Substance: BISOPROLOL\BISOPROLOL FUMARATE
     Indication: Hypertension
  4. antihistaminique [Concomitant]
     Indication: Hypersensitivity

REACTIONS (9)
  - Acute coronary syndrome [Recovering/Resolving]
  - Pharyngeal swelling [Recovering/Resolving]
  - Dysphagia [Recovering/Resolving]
  - Dyspnoea [Recovering/Resolving]
  - Chest pain [Recovered/Resolved]
  - Hypersensitivity [Recovered/Resolved]
  - Troponin increased [Recovered/Resolved]
  - Suffocation feeling [Recovering/Resolving]
  - Acute myocardial infarction [Recovered/Resolved]

NARRATIVE: CASE EVENT DATE: 20230621
